FAERS Safety Report 24034960 (Version 1)
Quarter: 2024Q3

REPORT INFORMATION
  Report Type: Spontaneous
  Country: CN (occurrence: CN)
  Receive Date: 20240701
  Receipt Date: 20240701
  Transmission Date: 20241017
  Serious: Yes (Other)
  Sender: SANOFI AVENTIS
  Company Number: CN-SA-SAC20240628000887

PATIENT
  Age: 54 Year
  Sex: Female
  Weight: 45 kg

DRUGS (4)
  1. ELOXATIN [Suspect]
     Active Substance: OXALIPLATIN
     Indication: Neoplasm
     Dosage: 120 MG, QD
     Route: 041
     Dates: start: 20240506, end: 20240506
  2. IRINOTECAN HYDROCHLORIDE [Suspect]
     Active Substance: IRINOTECAN HYDROCHLORIDE
     Indication: Neoplasm
     Dosage: 240 MG, QD
     Route: 041
     Dates: start: 20240506, end: 20240506
  3. LEUCOVORIN CALCIUM [Suspect]
     Active Substance: LEUCOVORIN CALCIUM
     Indication: Neoplasm
     Dosage: UNK
     Dates: start: 20240506, end: 20240506
  4. FLUOROURACIL [Suspect]
     Active Substance: FLUOROURACIL
     Indication: Neoplasm
     Dosage: 3200 MG, QOW
     Route: 042
     Dates: start: 20240506, end: 20240506

REACTIONS (1)
  - Drug-induced liver injury [Recovering/Resolving]

NARRATIVE: CASE EVENT DATE: 20240526
